FAERS Safety Report 13148805 (Version 3)
Quarter: 2017Q1

REPORT INFORMATION
  Report Type: Spontaneous
  Country: US (occurrence: US)
  Receive Date: 20170125
  Receipt Date: 20170307
  Transmission Date: 20170428
  Serious: Yes (Hospitalization, Other)
  Sender: FDA-Public Use
  Company Number: PHEH2017US002253

PATIENT
  Age: 63 Year
  Sex: Male

DRUGS (12)
  1. CARVEDILOL. [Concomitant]
     Active Substance: CARVEDILOL
     Dosage: 12.5 MG, BID
     Route: 048
     Dates: start: 20161128
  2. ENTRESTO [Suspect]
     Active Substance: SACUBITRIL\VALSARTAN
     Dosage: DECREASED DOSE
     Route: 048
     Dates: start: 20170118
  3. ASA [Concomitant]
     Active Substance: ASPIRIN
     Indication: MITRAL VALVE INCOMPETENCE
     Dosage: 81 MG, QD
     Route: 048
     Dates: start: 20141015
  4. ATORVASTATIN [Concomitant]
     Active Substance: ATORVASTATIN
     Indication: HYPERLIPIDAEMIA
     Dosage: 40 MG, QD (AT BED TIME)
     Route: 048
     Dates: start: 20161208
  5. SPIRONOLACTONE. [Concomitant]
     Active Substance: SPIRONOLACTONE
     Indication: CARDIAC FAILURE CHRONIC
     Dosage: 0.5 DF, QD
     Route: 048
     Dates: start: 20160519
  6. SPIRONOLACTONE. [Concomitant]
     Active Substance: SPIRONOLACTONE
     Dosage: 0.5 DF, QD
     Route: 048
     Dates: start: 20161110
  7. MAGNESIUM OXIDE. [Concomitant]
     Active Substance: MAGNESIUM OXIDE
     Indication: CARDIOMYOPATHY
     Dosage: 400 MG, QD
     Route: 048
     Dates: start: 20161013
  8. JANUMET [Concomitant]
     Active Substance: METFORMIN HYDROCHLORIDE\SITAGLIPTIN PHOSPHATE
     Indication: PRODUCT USED FOR UNKNOWN INDICATION
     Dosage: 1 DF, BID
     Route: 048
  9. ENTRESTO [Suspect]
     Active Substance: SACUBITRIL\VALSARTAN
     Dosage: 50 MG (24/26), BID
     Route: 048
     Dates: start: 20170130
  10. FUROSEMIDE. [Concomitant]
     Active Substance: FUROSEMIDE
     Indication: CARDIAC FAILURE CHRONIC
     Dosage: 40 MG, BID
     Route: 048
     Dates: start: 20160519
  11. ENTRESTO [Suspect]
     Active Substance: SACUBITRIL\VALSARTAN
     Indication: CARDIAC FAILURE CHRONIC
     Dosage: 200 MG (97/103), UNK
     Route: 048
     Dates: start: 20161215, end: 20170116
  12. CARVEDILOL. [Concomitant]
     Active Substance: CARVEDILOL
     Indication: CARDIAC FAILURE CHRONIC
     Dosage: 12.5 MG, BID
     Route: 048
     Dates: start: 20160519

REACTIONS (8)
  - Ventricular tachycardia [Recovering/Resolving]
  - Syncope [Recovered/Resolved]
  - Dizziness [Recovered/Resolved]
  - Diabetes mellitus inadequate control [Unknown]
  - Device malfunction [Unknown]
  - Ventricular tachycardia [Recovered/Resolved]
  - Oedema peripheral [Unknown]
  - Weight decreased [Unknown]

NARRATIVE: CASE EVENT DATE: 20170116
